APPROVED DRUG PRODUCT: RUFINAMIDE
Active Ingredient: RUFINAMIDE
Strength: 100MG
Dosage Form/Route: TABLET;ORAL
Application: A204964 | Product #001
Applicant: LUPIN LTD
Approved: Aug 17, 2022 | RLD: No | RS: No | Type: RX